FAERS Safety Report 14829162 (Version 1)
Quarter: 2018Q2

REPORT INFORMATION
  Report Type: Spontaneous
  Country: US (occurrence: US)
  Receive Date: 20180430
  Receipt Date: 20180430
  Transmission Date: 20180711
  Serious: Yes (Hospitalization, Other)
  Sender: FDA-Public Use
  Company Number: US-GLAXOSMITHKLINE-US2017GSK084685

PATIENT
  Age: 55 Year
  Sex: Female

DRUGS (1)
  1. VALACICLOVIR [Suspect]
     Active Substance: VALACYCLOVIR HYDROCHLORIDE
     Indication: HERPES ZOSTER
     Dosage: 1000 MG, UNK, RECEIVED SIX TIMES THE DOSE THAT SHOULD HAVE BEEN PROVIDED
     Route: 065

REACTIONS (11)
  - Cotard^s syndrome [Recovered/Resolved]
  - Posture abnormal [Recovered/Resolved]
  - Blood potassium increased [Recovered/Resolved]
  - Mental status changes [Recovered/Resolved]
  - Delusion [Recovered/Resolved]
  - Movement disorder [Recovered/Resolved]
  - Abnormal behaviour [Recovered/Resolved]
  - Overdose [Recovered/Resolved]
  - Blood creatinine increased [Recovered/Resolved]
  - Toxicity to various agents [Recovered/Resolved]
  - Neurotoxicity [Recovered/Resolved]
